FAERS Safety Report 16109689 (Version 1)
Quarter: 2019Q1

REPORT INFORMATION
  Report Type: Spontaneous
  Country: GB (occurrence: GB)
  Receive Date: 20190325
  Receipt Date: 20190325
  Transmission Date: 20190418
  Serious: Yes (Other)
  Sender: FDA-Public Use
  Company Number: GB-UCBSA-2019010969

PATIENT
  Age: 65 Year
  Sex: Male

DRUGS (1)
  1. KEPPRA [Suspect]
     Active Substance: LEVETIRACETAM
     Indication: PRODUCT USED FOR UNKNOWN INDICATION
     Dosage: 500 MG DAILY
     Dates: start: 201811

REACTIONS (7)
  - Tremor [Unknown]
  - Mood swings [Unknown]
  - Agitation [Unknown]
  - Irritability [Unknown]
  - Anxiety [Unknown]
  - Nervousness [Unknown]
  - Osteopenia [Unknown]
